FAERS Safety Report 10045741 (Version 2)
Quarter: 2014Q1

REPORT INFORMATION
  Report Type: Report from Study
  Country: BR (occurrence: BR)
  Receive Date: 20140328
  Receipt Date: 20140328
  Transmission Date: 20141002
  Serious: Yes (Hospitalization, Disabling, Other)
  Sender: FDA-Public Use
  Company Number: BR-ABBVIE-11P-020-0717584-00

PATIENT
  Age: 56 Year
  Sex: Female
  Weight: 76 kg

DRUGS (8)
  1. HUMIRA [Suspect]
     Indication: RHEUMATOID ARTHRITIS
     Route: 058
     Dates: start: 20110101, end: 201103
  2. TECNOMET [Concomitant]
     Indication: OSTEOARTHRITIS
  3. TECNOMET [Concomitant]
     Indication: ARTHRITIS
  4. PREDNISONE [Concomitant]
     Indication: ARTHRITIS
     Dosage: IN THE MORNING
  5. CALCIUM [Concomitant]
     Indication: PRODUCT USED FOR UNKNOWN INDICATION
     Dosage: AT LUNCH
  6. PROPRANOLOL [Concomitant]
     Indication: HYPERTENSION
     Dosage: IN THE MORNING AND SOMETINES AT NIGHT
  7. UNSPECIFIED DRUG [Concomitant]
     Indication: GASTRIC DISORDER
  8. HYDROCHLOROTHIAZIDE [Concomitant]
     Indication: DIURETIC THERAPY

REACTIONS (9)
  - Road traffic accident [Not Recovered/Not Resolved]
  - Tibia fracture [Recovering/Resolving]
  - Femur fracture [Recovering/Resolving]
  - Lower limb fracture [Not Recovered/Not Resolved]
  - Joint dislocation [Recovering/Resolving]
  - Arthropathy [Recovering/Resolving]
  - Abasia [Unknown]
  - Bedridden [Unknown]
  - Wheelchair user [Not Recovered/Not Resolved]
